FAERS Safety Report 9758791 (Version 1)
Quarter: 2013Q4

REPORT INFORMATION
  Report Type: Spontaneous
  Country: US (occurrence: None)
  Receive Date: 20131216
  Receipt Date: 20131216
  Transmission Date: 20140711
  Serious: Yes (Other)
  Sender: FDA-Public Use
  Company Number: 065001

PATIENT
  Age: 64 Year
  Sex: Female

DRUGS (1)
  1. CIMZIA [Suspect]
     Indication: CROHN^S DISEASE
     Dosage: (400 MG 1X/4 WEEKS MAINTENANCE DOSE EXPIRY DATE FOR LOT 74665 IS ??-MAY-2015 SUBCUTANEOUS)

REACTIONS (3)
  - Urticaria [None]
  - Pruritus generalised [None]
  - Skin disorder [None]
